FAERS Safety Report 7032043-6 (Version None)
Quarter: 2010Q4

REPORT INFORMATION
  Report Type: 
  Country: None (occurrence: None)
  Receive Date: 20101007
  Receipt Date: 20100928
  Transmission Date: 20110411
  Serious: Yes (Hospitalization, Other)
  Sender: FDA-Public Use
  Company Number: JP-MPIJNJ-2010-05030

PATIENT

DRUGS (1)
  1. VELCADE [Suspect]
     Indication: MULTIPLE MYELOMA
     Dosage: 1.3 MG, CYCLIC
     Route: 042

REACTIONS (7)
  - DECREASED APPETITE [None]
  - DIARRHOEA [None]
  - HERPES SIMPLEX [None]
  - ILEUS [None]
  - MALAISE [None]
  - NEUROGENIC BLADDER [None]
  - NEUROPATHY PERIPHERAL [None]
